FAERS Safety Report 6628688-5 (Version None)
Quarter: 2010Q1

REPORT INFORMATION
  Report Type: 
  Country: None (occurrence: None)
  Receive Date: 20100225
  Receipt Date: 20090128
  Transmission Date: 20100710
  Serious: Yes (Hospitalization)
  Sender: FDA-Public Use
  Company Number: 596096

PATIENT
  Age: 29 Year
  Sex: Female
  Weight: 63.5 kg

DRUGS (2)
  1. ACCUTANE [Suspect]
     Indication: ACNE
     Dosage: 40 MG 2 PER DAY
     Dates: start: 20000317, end: 20000801
  2. ORTHO TRI-CYCLEN [Concomitant]

REACTIONS (9)
  - ARTHRALGIA [None]
  - COLITIS [None]
  - CROHN'S DISEASE [None]
  - DRY EYE [None]
  - INFLAMMATORY BOWEL DISEASE [None]
  - MOOD SWINGS [None]
  - NASAL DRYNESS [None]
  - RASH PUSTULAR [None]
  - SMALL INTESTINAL OBSTRUCTION [None]
